FAERS Safety Report 18192650 (Version 1)
Quarter: 2020Q3

REPORT INFORMATION
  Report Type: Spontaneous
  Country: PT (occurrence: PT)
  Receive Date: 20200825
  Receipt Date: 20200825
  Transmission Date: 20201103
  Serious: Yes (Hospitalization)
  Sender: FDA-Public Use
  Company Number: PT-BAUSCH-BL-2020-023785

PATIENT
  Age: 46 Year
  Sex: Female

DRUGS (6)
  1. REMIFENTANIL [Suspect]
     Active Substance: REMIFENTANIL
     Indication: RHINOPLASTY
     Route: 042
     Dates: start: 201811, end: 201811
  2. METHYLPREDNISOLONE. [Suspect]
     Active Substance: METHYLPREDNISOLONE
     Indication: RHINOPLASTY
     Route: 042
     Dates: start: 201811, end: 201811
  3. CEFAZOLIN [Suspect]
     Active Substance: CEFAZOLIN
     Indication: RHINOPLASTY
     Route: 042
     Dates: start: 201811, end: 201811
  4. ROCURONIUM BROMIDE. [Suspect]
     Active Substance: ROCURONIUM BROMIDE
     Indication: RHINOPLASTY
     Route: 042
     Dates: start: 201811, end: 201811
  5. DEXAMETHASONE. [Suspect]
     Active Substance: DEXAMETHASONE
     Indication: RHINOPLASTY
     Route: 042
     Dates: start: 201811, end: 201811
  6. PROPOFOL. [Suspect]
     Active Substance: PROPOFOL
     Indication: RHINOPLASTY
     Route: 042
     Dates: start: 201811, end: 201811

REACTIONS (4)
  - Urinary retention [Recovered/Resolved]
  - Hypertensive crisis [Recovered/Resolved]
  - Generalised oedema [Recovered/Resolved]
  - Intestinal obstruction [Recovered/Resolved]

NARRATIVE: CASE EVENT DATE: 201811
